FAERS Safety Report 19695081 (Version 3)
Quarter: 2021Q4

REPORT INFORMATION
  Report Type: Report from Study
  Country: US (occurrence: US)
  Receive Date: 20210812
  Receipt Date: 20211030
  Transmission Date: 20220303
  Serious: No
  Sender: FDA-Public Use
  Company Number: NVSC2021US179858

PATIENT
  Age: 59 Year
  Sex: Female

DRUGS (1)
  1. COSENTYX [Suspect]
     Active Substance: SECUKINUMAB
     Indication: Psoriatic arthropathy
     Dosage: UNK
     Route: 065
     Dates: start: 20210718, end: 20210726

REACTIONS (3)
  - Aphthous ulcer [Unknown]
  - Hot flush [Unknown]
  - Candida infection [Unknown]

NARRATIVE: CASE EVENT DATE: 20210720
